FAERS Safety Report 21283310 (Version 1)
Quarter: 2022Q3

REPORT INFORMATION
  Report Type: Report from Study
  Country: FR (occurrence: FR)
  Receive Date: 20220901
  Receipt Date: 20220901
  Transmission Date: 20221027
  Serious: Yes (Hospitalization)
  Sender: FDA-Public Use
  Company Number: FR-AMGEN-FRACT2021008792

PATIENT
  Age: 60 Year
  Sex: Male
  Weight: 72.5 kg

DRUGS (3)
  1. SOTORASIB [Suspect]
     Active Substance: SOTORASIB
     Indication: K-ras gene mutation
     Dosage: 960 MILLIGRAM
     Route: 048
     Dates: start: 20200306
  2. SOTORASIB [Suspect]
     Active Substance: SOTORASIB
     Indication: Rectal adenocarcinoma
  3. TINZAPARIN [Concomitant]
     Active Substance: TINZAPARIN
     Dosage: 13000 INTERNATIONAL UNIT
     Route: 058
     Dates: start: 20201023, end: 20210112

REACTIONS (1)
  - Acute kidney injury [Recovered/Resolved]

NARRATIVE: CASE EVENT DATE: 20210111
